FAERS Safety Report 7716262-9 (Version None)
Quarter: 2011Q3

REPORT INFORMATION
  Report Type: 
  Country: None (occurrence: None)
  Receive Date: 20110829
  Receipt Date: 20110816
  Transmission Date: 20111222
  Serious: Yes (Other)
  Sender: FDA-Public Use
  Company Number: US-JNJFOC-20110811214

PATIENT
  Sex: Male
  Weight: 72.58 kg

DRUGS (4)
  1. TOPIRAMATE [Suspect]
     Indication: ANXIETY
     Route: 048
     Dates: start: 20100101
  2. TOPIRAMATE [Suspect]
     Indication: DEPRESSION
     Route: 048
     Dates: start: 20100101
  3. LITHIUM CARBONATE [Concomitant]
     Indication: BIPOLAR DISORDER
     Route: 048
     Dates: start: 20100101
  4. LORAZEPAM [Suspect]
     Indication: ANXIETY
     Route: 048
     Dates: start: 20100101

REACTIONS (6)
  - IRRITABILITY [None]
  - SLEEP DISORDER [None]
  - VISUAL ACUITY REDUCED [None]
  - TREATMENT NONCOMPLIANCE [None]
  - IMPAIRED DRIVING ABILITY [None]
  - HOT FLUSH [None]
